FAERS Safety Report 5230350-0 (Version None)
Quarter: 2007Q1

REPORT INFORMATION
  Report Type: 
  Country: None (occurrence: None)
  Receive Date: 20070206
  Receipt Date: 20070129
  Transmission Date: 20070707
  Serious: Yes (Other)
  Sender: FDA-Public Use
  Company Number: JP-PFIZER INC-2007007677

PATIENT
  Age: 43 Year
  Sex: Female

DRUGS (1)
  1. SERTRALINE [Suspect]
     Indication: DEPRESSION
     Dosage: DAILY DOSE:75MG
     Route: 048
     Dates: start: 20061218, end: 20070118

REACTIONS (4)
  - CONVERSION DISORDER [None]
  - CONVULSION [None]
  - FALL [None]
  - JOINT DISLOCATION [None]
